FAERS Safety Report 17457501 (Version 1)
Quarter: 2020Q1

REPORT INFORMATION
  Report Type: Spontaneous
  Country: US (occurrence: US)
  Receive Date: 20200225
  Receipt Date: 20200225
  Transmission Date: 20200409
  Serious: Yes (Hospitalization)
  Sender: FDA-Public Use
  Company Number: US-ELI_LILLY_AND_COMPANY-US202002007691

PATIENT
  Age: 80 Year
  Sex: Female
  Weight: 83.9 kg

DRUGS (1)
  1. EMGALITY [Suspect]
     Active Substance: GALCANEZUMAB-GNLM
     Indication: MIGRAINE WITH AURA
     Dosage: 120 MG, MONTHLY (1/M)
     Route: 058
     Dates: start: 20190505

REACTIONS (1)
  - Colitis ischaemic [Unknown]
